FAERS Safety Report 7426489-1 (Version None)
Quarter: 2011Q2

REPORT INFORMATION
  Report Type: 
  Country: None (occurrence: None)
  Receive Date: 20110420
  Receipt Date: 20110411
  Transmission Date: 20111010
  Serious: Yes (Hospitalization)
  Sender: FDA-Public Use
  Company Number: PHHY2011US20718

PATIENT
  Sex: Male

DRUGS (1)
  1. EXJADE [Suspect]
     Indication: APLASTIC ANAEMIA
     Dosage: 1000 MG, QD
     Route: 048

REACTIONS (3)
  - PYREXIA [None]
  - NASOPHARYNGITIS [None]
  - CHOLELITHIASIS [None]
